FAERS Safety Report 13270613 (Version 3)
Quarter: 2017Q3

REPORT INFORMATION
  Report Type: Spontaneous
  Country: KR (occurrence: KR)
  Receive Date: 20170224
  Receipt Date: 20170728
  Transmission Date: 20171127
  Serious: Yes (Hospitalization)
  Sender: FDA-Public Use
  Company Number: KR-009507513-1702KOR010364

PATIENT
  Age: 54 Year
  Sex: Male
  Weight: 47.1 kg

DRUGS (80)
  1. EMEND (FOSAPREPITANT DIMEGLUMINE) [Suspect]
     Active Substance: FOSAPREPITANT DIMEGLUMINE
     Indication: PROPHYLAXIS OF NAUSEA AND VOMITING
     Dosage: 150 MG, ONCE
     Route: 042
     Dates: start: 20160816, end: 20160816
  2. GEMZAR [Concomitant]
     Active Substance: GEMCITABINE HYDROCHLORIDE
     Dosage: 1830 MG, ONCE
     Route: 042
     Dates: start: 20160824, end: 20160824
  3. DEXAMETHASONE DAEWON [Concomitant]
     Dosage: STRENGTH: 5 MG / ML, 5 MG, ONCE
     Route: 042
     Dates: start: 20160906, end: 20160906
  4. DEXAMETHASONE DAEWOO [Concomitant]
     Dosage: 0.5 MG, FREQUENCY: 1
     Route: 048
     Dates: start: 20160906, end: 20160908
  5. DUPHALAC [Concomitant]
     Active Substance: LACTULOSE
     Dosage: 15 ML, FREQUENCY: 3
     Route: 048
     Dates: start: 20160812, end: 20160812
  6. DUPHALAC [Concomitant]
     Active Substance: LACTULOSE
     Dosage: 15 ML, FREQUENCY: 4
     Route: 048
     Dates: start: 20160813, end: 20160813
  7. DAEWON MEGESTROL ES [Concomitant]
     Indication: DYSGEUSIA
     Dosage: 5 ML, FREQUENCY: 1
     Route: 048
     Dates: start: 20160816
  8. APIDRA [Concomitant]
     Active Substance: INSULIN GLULISINE
     Indication: DIABETES MELLITUS
     Dosage: 0.06 ML, FREQUENCY: 3
     Route: 058
     Dates: start: 20160802
  9. MACPERAN [Concomitant]
     Active Substance: METOCLOPRAMIDE HYDROCHLORIDE
     Dosage: 2 ML, FREQUENCY: 1
     Route: 042
     Dates: start: 20160821, end: 20160821
  10. PLAKON [Concomitant]
     Dosage: STRENGTH 3 MG/ 2 ML, 1 ML, ONCE
     Route: 030
     Dates: start: 20160929, end: 20160929
  11. PLAKON [Concomitant]
     Dosage: STRENGTH 3 MG/ 2 ML, 1 ML, ONCE
     Route: 030
     Dates: start: 20161121, end: 20161121
  12. GEMZAR [Concomitant]
     Active Substance: GEMCITABINE HYDROCHLORIDE
     Dosage: 1762 MG, ONCE
     Route: 042
     Dates: start: 20161121, end: 20161121
  13. DEXAMETHASONE DAEWON [Concomitant]
     Dosage: STRENGTH: 5 MG / ML, 5 MG, ONCE
     Route: 042
     Dates: start: 20160929, end: 20160929
  14. DEXAMETHASONE DAEWON [Concomitant]
     Dosage: STRENGTH: 5 MG / ML, 5 MG, ONCE
     Route: 042
     Dates: start: 20161108, end: 20161108
  15. DEXAMETHASONE DAEWOO [Concomitant]
     Indication: PROPHYLAXIS OF NAUSEA AND VOMITING
     Dosage: 0.5 MG, FREQUENCY: 1
     Route: 048
     Dates: start: 20160817, end: 20160819
  16. DEXAMETHASONE DAEWOO [Concomitant]
     Dosage: 0.5 MG, FREQUENCY: 1
     Route: 048
     Dates: start: 20160929, end: 20161001
  17. ALOXI [Concomitant]
     Active Substance: PALONOSETRON HYDROCHLORIDE
     Dosage: 0.25 MG, ONCE
     Route: 042
     Dates: start: 20160906, end: 20160906
  18. IRCODON [Concomitant]
     Active Substance: OXYCODONE HYDROCHLORIDE
     Indication: CANCER PAIN
     Dosage: 1 TABLET (5 MG), FREQUENCY: 3
     Route: 048
     Dates: start: 20160809, end: 20161009
  19. MACPERAN [Concomitant]
     Active Substance: METOCLOPRAMIDE HYDROCHLORIDE
     Dosage: 2 ML, FREQUENCY: 1
     Route: 042
     Dates: start: 20160906, end: 20160906
  20. MACPERAN [Concomitant]
     Active Substance: METOCLOPRAMIDE HYDROCHLORIDE
     Dosage: 2 ML, FREQUENCY: 1
     Route: 042
     Dates: start: 20161107, end: 20161108
  21. MAGNESIN (MAGNESIUM SULFATE) [Concomitant]
     Dosage: 10 ML, FREQUENCY 2
     Route: 042
     Dates: start: 20161108, end: 20161108
  22. ALOXI [Concomitant]
     Active Substance: PALONOSETRON HYDROCHLORIDE
     Indication: PROPHYLAXIS OF NAUSEA AND VOMITING
     Dosage: 5 ML, ONCE
     Route: 042
     Dates: start: 20160816, end: 20160816
  23. VIMOVO [Concomitant]
     Active Substance: ESOMEPRAZOLE MAGNESIUM\NAPROXEN
     Indication: PULMONARY TUBERCULOSIS
     Dosage: 1 TABLET (500/20 MG), FREQUENCY: 2
     Route: 048
     Dates: start: 2014
  24. BORYUNG MEIACT [Concomitant]
     Indication: PULMONARY TUBERCULOSIS
     Dosage: 2 TABLETS (200 MG), TID
     Route: 048
     Dates: start: 2014
  25. MORPHINE SULFATE. [Concomitant]
     Active Substance: MORPHINE SULFATE
     Indication: CANCER PAIN
     Dosage: STRENGHT 5MG/ 5ML, 3 MG, ONCE
     Route: 042
     Dates: start: 20160816, end: 20160816
  26. BEARSE [Concomitant]
     Dosage: 1 TABLET, FREQUENCY: 1
     Route: 048
     Dates: start: 20160827, end: 20160827
  27. NEXIUM [Concomitant]
     Active Substance: ESOMEPRAZOLE MAGNESIUM
     Indication: DYSPEPSIA
     Dosage: 1 TABLET (40) MG, QD
     Route: 048
     Dates: start: 20160802, end: 20160809
  28. LANTUS [Concomitant]
     Active Substance: INSULIN GLARGINE
     Dosage: STRENGTH 100 IU/ML, 9 UNITS, FREQUENCY: 1
     Route: 058
     Dates: start: 20161011, end: 20161011
  29. MACPERAN [Concomitant]
     Active Substance: METOCLOPRAMIDE HYDROCHLORIDE
     Indication: PROPHYLAXIS
     Dosage: 2 ML, FREQUENCY: 1
     Route: 042
     Dates: start: 20160816, end: 20160816
  30. PLAKON [Concomitant]
     Dosage: STRENGTH 3 MG/ 2 ML, 2 ML, ONCE
     Route: 030
     Dates: start: 20160824, end: 20160824
  31. PLAKON [Concomitant]
     Dosage: STRENGTH 3 MG/ 2 ML, 1 ML, ONCE
     Route: 030
     Dates: start: 20161107, end: 20161107
  32. EMEND (FOSAPREPITANT DIMEGLUMINE) [Suspect]
     Active Substance: FOSAPREPITANT DIMEGLUMINE
     Dosage: 150 MG, ONCE
     Route: 042
     Dates: start: 20161108, end: 20161108
  33. CISPLATIN. [Concomitant]
     Active Substance: CISPLATIN
     Dosage: 109 MG, ONCE
     Route: 042
     Dates: start: 20160910, end: 20160910
  34. GEMZAR [Concomitant]
     Active Substance: GEMCITABINE HYDROCHLORIDE
     Indication: LUNG NEOPLASM MALIGNANT
     Dosage: 1825 MG, ONCE
     Route: 042
     Dates: start: 20160816, end: 20160816
  35. GEMZAR [Concomitant]
     Active Substance: GEMCITABINE HYDROCHLORIDE
     Dosage: 1830 MG, ONCE
     Route: 042
     Dates: start: 20160906, end: 20160906
  36. ALOXI [Concomitant]
     Active Substance: PALONOSETRON HYDROCHLORIDE
     Dosage: 0.25 MG, ONCE
     Route: 042
     Dates: start: 20160929, end: 20160929
  37. JURNISTA [Concomitant]
     Active Substance: HYDROMORPHONE HYDROCHLORIDE
     Indication: DIABETES MELLITUS
     Dosage: 1 TABLET (8 MG), FREQUENCY: 1
     Route: 048
     Dates: start: 2014
  38. JANUVIA [Concomitant]
     Active Substance: SITAGLIPTIN PHOSPHATE
     Indication: DIABETES MELLITUS
     Dosage: 100 MG, FREQUENCY: 1
     Route: 048
     Dates: start: 20160812
  39. MACPERAN [Concomitant]
     Active Substance: METOCLOPRAMIDE HYDROCHLORIDE
     Indication: PROPHYLAXIS AGAINST GASTROINTESTINAL ULCER
     Dosage: 1 TABLET, FREQUENCY: 3
     Route: 048
     Dates: start: 20160816, end: 20160820
  40. MACPERAN [Concomitant]
     Active Substance: METOCLOPRAMIDE HYDROCHLORIDE
     Dosage: 1 TABLET, FREQUENCY: 3
     Route: 048
     Dates: start: 20160913, end: 20160917
  41. MACPERAN [Concomitant]
     Active Substance: METOCLOPRAMIDE HYDROCHLORIDE
     Dosage: 2 ML, FREQUENCY: 1
     Route: 042
     Dates: start: 20161121, end: 20161121
  42. MAGNESIN (MAGNESIUM SULFATE) [Concomitant]
     Dosage: 10 ML, FREQUENCY 2
     Route: 042
     Dates: start: 20160906, end: 20160906
  43. MAGNESIN (MAGNESIUM SULFATE) [Concomitant]
     Dosage: 10 ML, FREQUENCY 2
     Route: 042
     Dates: start: 20160929, end: 20160929
  44. EMEND (FOSAPREPITANT DIMEGLUMINE) [Suspect]
     Active Substance: FOSAPREPITANT DIMEGLUMINE
     Dosage: 150 MG, ONCE
     Route: 042
     Dates: start: 20160929, end: 20160929
  45. CISPLATIN. [Concomitant]
     Active Substance: CISPLATIN
     Indication: LUNG NEOPLASM MALIGNANT
     Dosage: 109 MG, ONCE
     Route: 042
     Dates: start: 20160816, end: 20160816
  46. BISACODYL. [Concomitant]
     Active Substance: BISACODYL
     Indication: CONSTIPATION PROPHYLAXIS
     Dosage: 2 TABLETS (10 MG), FREQUENCY: 2
     Route: 048
     Dates: start: 20160807, end: 20160808
  47. MACPERAN [Concomitant]
     Active Substance: METOCLOPRAMIDE HYDROCHLORIDE
     Dosage: 1 TABLET, FREQUENCY: 3
     Route: 048
     Dates: start: 20160906, end: 20160910
  48. NAXEN [Concomitant]
     Indication: CANCER PAIN
     Dosage: 1 TABLET, FREQUENCY: 2
     Route: 048
     Dates: start: 20160802
  49. TARGIN [Concomitant]
     Active Substance: NALOXONE HYDROCHLORIDE\OXYCODONE HYDROCHLORIDE
     Indication: CANCER PAIN
     Dosage: 1 TABLET (10/5 MG), FREQUENCY: 2
     Route: 048
     Dates: start: 20160809
  50. MACPERAN [Concomitant]
     Active Substance: METOCLOPRAMIDE HYDROCHLORIDE
     Dosage: 2 ML, FREQUENCY: 1
     Route: 042
     Dates: start: 20160824, end: 20160824
  51. EMEND (FOSAPREPITANT DIMEGLUMINE) [Suspect]
     Active Substance: FOSAPREPITANT DIMEGLUMINE
     Dosage: 150 MG, ONCE
     Route: 042
     Dates: start: 20160906, end: 20160906
  52. CISPLATIN. [Concomitant]
     Active Substance: CISPLATIN
     Dosage: 109 MG, ONCE
     Route: 042
     Dates: start: 20160929, end: 20160929
  53. GEMZAR [Concomitant]
     Active Substance: GEMCITABINE HYDROCHLORIDE
     Dosage: 1830 MG, ONCE
     Route: 042
     Dates: start: 20160929, end: 20160929
  54. BEARSE [Concomitant]
     Indication: PROPHYLAXIS
     Dosage: 1 TABLET, FREQUENCY: 1
     Route: 048
     Dates: start: 20160810, end: 20160811
  55. DUPHALAC [Concomitant]
     Active Substance: LACTULOSE
     Dosage: 15 ML, FREQUENCY: 3
     Route: 048
     Dates: start: 20160816
  56. IRCODON [Concomitant]
     Active Substance: OXYCODONE HYDROCHLORIDE
     Dosage: 2 TABLETS (5 MG), FREQUENCY: 3
     Route: 048
     Dates: start: 20161010, end: 20161108
  57. IRCODON [Concomitant]
     Active Substance: OXYCODONE HYDROCHLORIDE
     Dosage: 3 TABLETS (5 MG), FREQUENCY: 3
     Route: 048
     Dates: start: 20161109
  58. MACPERAN [Concomitant]
     Active Substance: METOCLOPRAMIDE HYDROCHLORIDE
     Dosage: 1 TABLET, FREQUENCY: 3
     Route: 048
     Dates: start: 20160929, end: 20161004
  59. MACPERAN [Concomitant]
     Active Substance: METOCLOPRAMIDE HYDROCHLORIDE
     Dosage: 1 TABLET, FREQUENCY: 3
     Route: 048
     Dates: start: 20161110, end: 20161115
  60. PLAKON [Concomitant]
     Indication: ALLERGY PROPHYLAXIS
     Dosage: STRENGTH 3 MG/ 2 ML, 1 ML, ONCE
     Route: 030
     Dates: start: 20160816, end: 20160816
  61. PLAKON [Concomitant]
     Dosage: STRENGTH 3 MG/ 2 ML, 1 ML, ONCE
     Route: 030
     Dates: start: 20160906, end: 20160906
  62. CISPLATIN. [Concomitant]
     Active Substance: CISPLATIN
     Dosage: 105 MG, ONCE
     Route: 042
     Dates: start: 20161108, end: 20161108
  63. GEMZAR [Concomitant]
     Active Substance: GEMCITABINE HYDROCHLORIDE
     Dosage: 1762 MG, ONCE
     Route: 042
     Dates: start: 20161108, end: 20161108
  64. ALOXI [Concomitant]
     Active Substance: PALONOSETRON HYDROCHLORIDE
     Dosage: 0.25 MG, ONCE
     Route: 042
     Dates: start: 20161118, end: 20161118
  65. DUROGESIC [Concomitant]
     Active Substance: FENTANYL
     Indication: CANCER PAIN
     Dosage: STRENGTH 25 MCG/H 10.5 CM2, 1 DF, QD
     Route: 062
     Dates: start: 20160803, end: 20160813
  66. DAEWON MEGESTROL ES [Concomitant]
     Indication: PROPHYLAXIS
  67. MAGMIL [Concomitant]
     Active Substance: MAGNESIUM HYDROXIDE
     Indication: CONSTIPATION PROPHYLAXIS
     Dosage: 1 TABLET (500 MG), FREQUENCY: 2
     Dates: start: 20160802
  68. GLUCOPHAGE XR [Concomitant]
     Active Substance: METFORMIN HYDROCHLORIDE
     Indication: DIABETES MELLITUS
     Dosage: 1 TABLET (500 MG), FREQUENCY: 2
     Dates: start: 20160812
  69. LANTUS [Concomitant]
     Active Substance: INSULIN GLARGINE
     Indication: DIABETES MELLITUS
     Dosage: STRENGTH 100 IU/ML, 9 UNITS, FREQUENCY: 1
     Route: 058
     Dates: start: 20160802, end: 20160811
  70. MACPERAN [Concomitant]
     Active Substance: METOCLOPRAMIDE HYDROCHLORIDE
     Dosage: 2 ML, FREQUENCY: 1
     Route: 042
     Dates: start: 20160929, end: 20160929
  71. MACPERAN [Concomitant]
     Active Substance: METOCLOPRAMIDE HYDROCHLORIDE
     Dosage: 2 ML, FREQUENCY: 1
     Route: 042
     Dates: start: 20161006, end: 20161006
  72. ROCEPHIN [Concomitant]
     Active Substance: CEFTRIAXONE SODIUM
     Indication: INFECTION PROPHYLAXIS
     Dosage: 2 G, FREQUENCY: 1
     Route: 042
     Dates: start: 20160802, end: 20160811
  73. DEXAMETHASONE DAEWON [Concomitant]
     Indication: PROPHYLAXIS OF NAUSEA AND VOMITING
     Dosage: STRENGTH: 5 MG / ML, 5 MG, ONCE
     Route: 042
     Dates: start: 20160816, end: 20160816
  74. DUPHALAC [Concomitant]
     Active Substance: LACTULOSE
     Indication: CONSTIPATION PROPHYLAXIS
     Dosage: 15 ML, FREQUENCY: 2
     Route: 048
     Dates: start: 20160811, end: 20160811
  75. MACPERAN [Concomitant]
     Active Substance: METOCLOPRAMIDE HYDROCHLORIDE
     Dosage: 1 TABLET, FREQUENCY: 3
     Route: 048
     Dates: start: 20161121, end: 20161125
  76. MOTILIUM M [Concomitant]
     Indication: PROPHYLAXIS OF NAUSEA AND VOMITING
     Dosage: 1 TABLET (10 MG), FREQUENCY: 2
     Route: 048
     Dates: start: 20160809, end: 20160816
  77. NEXIUM [Concomitant]
     Active Substance: ESOMEPRAZOLE MAGNESIUM
     Indication: PROPHYLAXIS
     Dosage: 1 TABLET (20 MG), FREQUENCY: 1
     Route: 048
     Dates: start: 20160810
  78. SYLCON [Concomitant]
     Indication: CONSTIPATION PROPHYLAXIS
     Dosage: 650 MG, FREQUENCY: 1
     Route: 048
     Dates: start: 20160807, end: 20160807
  79. SYLCON [Concomitant]
     Dosage: TWICE A DAY WITH 2 TABLETS AND ADDITIONAL 1 TABLET
     Route: 048
     Dates: start: 20161008, end: 20161008
  80. MAGNESIN (MAGNESIUM SULFATE) [Concomitant]
     Indication: PROPHYLAXIS
     Dosage: 10 ML, FREQUENCY 2
     Route: 042
     Dates: start: 20160816, end: 20160816

REACTIONS (3)
  - Abdominal pain [Recovered/Resolved]
  - Drug ineffective [Unknown]
  - Chest pain [Recovered/Resolved]

NARRATIVE: CASE EVENT DATE: 20160820
